FAERS Safety Report 8922821 (Version 1)
Quarter: 2012Q4

REPORT INFORMATION
  Report Type: 
  Country: US (occurrence: US)
  Receive Date: 20121123
  Receipt Date: 20121123
  Transmission Date: 20130627
  Serious: Yes (Other)
  Sender: FDA-Public Use
  Company Number: US-JNJFOC-20121011502

PATIENT
  Age: 89 Year
  Sex: Male
  Weight: 76.2 kg

DRUGS (2)
  1. IMODIUM A-D [Suspect]
     Indication: DIARRHOEA
     Route: 048
     Dates: start: 20121015, end: 20121103
  2. IMODIUM A-D [Suspect]
     Indication: DIARRHOEA
     Route: 048

REACTIONS (3)
  - Intestinal obstruction [Recovering/Resolving]
  - Pain in extremity [Unknown]
  - Adverse reaction [Unknown]
